FAERS Safety Report 23922797 (Version 3)
Quarter: 2024Q3

REPORT INFORMATION
  Report Type: Spontaneous
  Country: FR (occurrence: FR)
  Receive Date: 20240531
  Receipt Date: 20240716
  Transmission Date: 20241017
  Serious: Yes (Other)
  Sender: DECIPHERA PHARMACEUTICALS
  Company Number: FR-DECIPHERA PHARMACEUTICALS LLC-2023FR000370

PATIENT
  Sex: Male
  Weight: 61 kg

DRUGS (6)
  1. QINLOCK [Suspect]
     Active Substance: RIPRETINIB
     Indication: Gastrointestinal stromal tumour
     Dosage: 150 MILLIGRAM, QD
     Route: 048
     Dates: start: 20221222
  2. QINLOCK [Suspect]
     Active Substance: RIPRETINIB
     Dosage: 300 MILLIGRAM, QD (DOUBLE DOSE)
     Route: 048
     Dates: start: 20240618
  3. REPAGLINIDE [Concomitant]
     Active Substance: REPAGLINIDE
     Indication: Hypertension
     Dosage: 1 MILLIGRAM (1 TABLET IN THE MORNING)
     Route: 048
     Dates: start: 20190924
  4. REPAGLINIDE [Concomitant]
     Active Substance: REPAGLINIDE
     Indication: Renal disorder prophylaxis
  5. LANSOPRAZOLE [Concomitant]
     Active Substance: LANSOPRAZOLE
     Indication: Dyspepsia
     Dosage: 30 MILLIGRAM (1 TABLET IN THE MORNING)
     Dates: start: 20180601
  6. ALLOPURINOL [Concomitant]
     Active Substance: ALLOPURINOL
     Indication: Hyperuricaemia
     Dosage: 100 MILLIGRAM (1 TABLET IN THE MORNING)
     Dates: start: 20190924

REACTIONS (3)
  - Metastases to liver [Unknown]
  - Off label use [Unknown]
  - Extra dose administered [Unknown]

NARRATIVE: CASE EVENT DATE: 20240517
